FAERS Safety Report 4423678-5 (Version None)
Quarter: 2004Q3

REPORT INFORMATION
  Report Type: 
  Country: None (occurrence: None)
  Receive Date: 20040714
  Receipt Date: 20040510
  Transmission Date: 20050211
  Serious: Yes (Other)
  Sender: FDA-Public Use
  Company Number: HQWYE871613MAY04

PATIENT
  Age: 10 Year
  Sex: Female

DRUGS (4)
  1. ALAVERT [Suspect]
     Indication: RHINORRHOEA
     Dosage: 1 TAB TWO TIMES; ORAL
     Route: 048
     Dates: start: 20040503, end: 20040504
  2. ALAVERT [Suspect]
     Indication: SNEEZING
     Dosage: 1 TAB TWO TIMES; ORAL
     Route: 048
     Dates: start: 20040503, end: 20040504
  3. NASONEX [Concomitant]
  4. UNKNOWN (UNKNOWN) [Concomitant]

REACTIONS (1)
  - ORAL DISCOMFORT [None]
